FAERS Safety Report 16987827 (Version 3)
Quarter: 2019Q4

REPORT INFORMATION
  Report Type: Report from Study
  Country: None (occurrence: US)
  Receive Date: 20191104
  Receipt Date: 20191212
  Transmission Date: 20200122
  Serious: No
  Sender: FDA-Public Use
  Company Number: US-ABBVIE-19K-163-2985550-00

PATIENT
  Age: 64 Year
  Sex: Male

DRUGS (2)
  1. VENCLEXTA [Suspect]
     Active Substance: VENETOCLAX
     Indication: CHRONIC LYMPHOCYTIC LEUKAEMIA
     Route: 048
     Dates: start: 20191021
  2. VENCLEXTA [Suspect]
     Active Substance: VENETOCLAX
     Route: 048

REACTIONS (6)
  - White blood cell count abnormal [Recovering/Resolving]
  - Fatigue [Unknown]
  - Decreased activity [Unknown]
  - Depressed mood [Recovering/Resolving]
  - Joint swelling [Unknown]
  - Lung disorder [Unknown]

NARRATIVE: CASE EVENT DATE: 2019
